FAERS Safety Report 24561023 (Version 1)
Quarter: 2024Q4

REPORT INFORMATION
  Report Type: Spontaneous
  Country: US (occurrence: US)
  Receive Date: 20241029
  Receipt Date: 20241029
  Transmission Date: 20250115
  Serious: No
  Sender: NOBELPHARMA AMERICA, LLC
  Company Number: US-Nobelpharma America, LLC-NPA-2024-01844

PATIENT
  Age: 34 Year
  Sex: Male

DRUGS (7)
  1. HYFTOR [Suspect]
     Active Substance: SIROLIMUS
     Indication: Angiofibroma
     Route: 061
     Dates: start: 20240627, end: 20241001
  2. CALCIUM [Concomitant]
     Active Substance: CALCIUM
  3. DIVALPROEX SODIUM [Concomitant]
     Active Substance: DIVALPROEX SODIUM
     Dosage: SPRINKLES
  4. EVEROLIMUS [Concomitant]
     Active Substance: EVEROLIMUS
  5. QUETIAPINE [Concomitant]
     Active Substance: QUETIAPINE
  6. SIMVASTATIN [Concomitant]
     Active Substance: SIMVASTATIN
  7. VITAMIN C [Concomitant]
     Active Substance: ASCORBIC ACID

REACTIONS (1)
  - Drug ineffective [Recovered/Resolved]

NARRATIVE: CASE EVENT DATE: 20241001
